FAERS Safety Report 8592176-X (Version None)
Quarter: 2012Q3

REPORT INFORMATION
  Report Type: 
  Country: None (occurrence: None)
  Receive Date: 20120814
  Receipt Date: 20120802
  Transmission Date: 20120928
  Serious: Yes (Other)
  Sender: FDA-Public Use
  Company Number: AT-ELI_LILLY_AND_COMPANY-AT201208001800

PATIENT
  Age: 68 Year
  Sex: Female

DRUGS (3)
  1. SEROQUEL [Concomitant]
     Dosage: 25 MG, 4 TIMES 1/2 DAILY (CLARIFICATION REQUIRED)
  2. CYMBALTA [Suspect]
     Dosage: 90 MG, QD
     Dates: start: 20120501
  3. ZOLDEM [Concomitant]
     Dosage: 2 DF, QD

REACTIONS (1)
  - ELECTROCARDIOGRAM QT PROLONGED [None]
